FAERS Safety Report 5534782-2 (Version None)
Quarter: 2007Q4

REPORT INFORMATION
  Report Type: 
  Country: None (occurrence: None)
  Receive Date: 20071205
  Receipt Date: 20071128
  Transmission Date: 20080405
  Serious: Yes (Hospitalization)
  Sender: FDA-Public Use
  Company Number: FR-GENENTECH-252055

PATIENT
  Age: 23 Year
  Sex: Male

DRUGS (8)
  1. SOMATROPIN [Suspect]
     Indication: GROWTH HORMONE DEFICIENCY
     Dosage: 0.4 MG, QD
     Route: 058
     Dates: start: 20061113
  2. LEVOTHYROX [Concomitant]
     Indication: THYROID DISORDER
     Route: 048
  3. HYDROCORTISONE [Concomitant]
     Indication: HYPOPITUITARISM
     Route: 048
  4. MINIRIN [Concomitant]
     Indication: HYPOPITUITARISM
     Route: 045
  5. STEROGYL [Concomitant]
     Indication: HYPOPITUITARISM
     Route: 048
  6. TRILEPTAL [Concomitant]
     Indication: EPILEPSY
     Dosage: 1200 MG, QD
     Route: 048
  7. ZONEGRAN [Concomitant]
     Indication: EPILEPSY
     Dosage: 200 MG, QD
     Route: 048
  8. URBANYL [Concomitant]
     Indication: DRUG USE FOR UNKNOWN INDICATION
     Dosage: 20 MG, UNK
     Route: 048

REACTIONS (2)
  - AGGRESSION [None]
  - NERVOUSNESS [None]
